FAERS Safety Report 11953550 (Version 2)
Quarter: 2016Q1

REPORT INFORMATION
  Report Type: Spontaneous
  Country: DE (occurrence: DE)
  Receive Date: 20160126
  Receipt Date: 20160210
  Transmission Date: 20160526
  Serious: Yes (Hospitalization)
  Sender: FDA-Public Use
  Company Number: DK-OTSUKA-2016_001838

PATIENT
  Age: 45 Year
  Sex: Female

DRUGS (1)
  1. SAMSCA [Suspect]
     Active Substance: TOLVAPTAN
     Indication: INAPPROPRIATE ANTIDIURETIC HORMONE SECRETION
     Dosage: 15 MG, QD
     Route: 065

REACTIONS (3)
  - Delirium [Unknown]
  - Hallucination [Unknown]
  - Rapid correction of hyponatraemia [Unknown]
